FAERS Safety Report 16213711 (Version 8)
Quarter: 2021Q1

REPORT INFORMATION
  Report Type: Spontaneous
  Country: US (occurrence: US)
  Receive Date: 20190418
  Receipt Date: 20210317
  Transmission Date: 20210419
  Serious: Yes (Life-Threatening, Other)
  Sender: FDA-Public Use
  Company Number: US-PFIZER INC-2018486636

PATIENT
  Age: 69 Year
  Sex: Male
  Weight: 74.84 kg

DRUGS (4)
  1. VFEND [Suspect]
     Active Substance: VORICONAZOLE
     Dosage: 300 MG (50 + 200 MG TABLETS), TWICE A DAY (MORNING AND NIGHT)
  2. VFEND [Suspect]
     Active Substance: VORICONAZOLE
     Dosage: 200 MG, 1 TABLET TWICE A DAY
  3. VFEND [Suspect]
     Active Substance: VORICONAZOLE
     Indication: FUNGAL INFECTION
     Dosage: 200 MG, TWICE A DAY
     Route: 048
     Dates: start: 201712
  4. VFEND [Suspect]
     Active Substance: VORICONAZOLE
     Indication: GRAFT INFECTION
     Dosage: 100 MG (TWO 50 MG TABLET), TWICE A DAY
     Route: 048
     Dates: start: 201712

REACTIONS (6)
  - Product dispensing error [Unknown]
  - Gait disturbance [Unknown]
  - Abdominal pain upper [Unknown]
  - Memory impairment [Unknown]
  - Cerebral haemorrhage [Unknown]
  - Peripheral vascular disorder [Unknown]

NARRATIVE: CASE EVENT DATE: 20191016
